FAERS Safety Report 15986652 (Version 5)
Quarter: 2020Q2

REPORT INFORMATION
  Report Type: Report from Study
  Country: US (occurrence: US)
  Receive Date: 20190220
  Receipt Date: 20200505
  Transmission Date: 20200713
  Serious: Yes (Other)
  Sender: FDA-Public Use
  Company Number: US-ACTELION-A-NJ2018-166903

PATIENT
  Age: 63 Year
  Sex: Female
  Weight: 63.04 kg

DRUGS (4)
  1. TYVASO [Concomitant]
     Active Substance: TREPROSTINIL
  2. OPSUMIT [Suspect]
     Active Substance: MACITENTAN
     Indication: PULMONARY HYPERTENSION
     Dosage: 10 MG, QD
     Route: 048
  3. SILDENAFIL CITRATE. [Concomitant]
     Active Substance: SILDENAFIL CITRATE
  4. AMLODIPINE [Concomitant]
     Active Substance: AMLODIPINE BESYLATE

REACTIONS (31)
  - Blood pressure fluctuation [Unknown]
  - Condition aggravated [Unknown]
  - Lymphadenopathy [Unknown]
  - Chills [Recovering/Resolving]
  - Toothache [Unknown]
  - Dizziness postural [Unknown]
  - Dyspnoea exertional [Unknown]
  - Product dose omission [Unknown]
  - Rhinorrhoea [Recovering/Resolving]
  - Limb discomfort [Unknown]
  - Scleroderma [Unknown]
  - Headache [Unknown]
  - Diarrhoea [Recovering/Resolving]
  - Myalgia [Unknown]
  - Asthenia [Unknown]
  - Ear discomfort [Unknown]
  - Pyrexia [Recovering/Resolving]
  - Nasal congestion [Unknown]
  - Dyspnoea [Unknown]
  - Swelling face [Unknown]
  - Sinusitis [Unknown]
  - Malaise [Recovering/Resolving]
  - Chest discomfort [Recovering/Resolving]
  - Cough [Recovering/Resolving]
  - Anxiety [Unknown]
  - Influenza [Unknown]
  - Hypoaesthesia [Unknown]
  - Ear pain [Unknown]
  - Pain in extremity [Unknown]
  - Nasal cavity mass [Unknown]
  - Hypopnoea [Unknown]

NARRATIVE: CASE EVENT DATE: 201911
